FAERS Safety Report 5284885-5 (Version None)
Quarter: 2007Q2

REPORT INFORMATION
  Report Type: 
  Country: None (occurrence: None)
  Receive Date: 20070403
  Receipt Date: 20070326
  Transmission Date: 20071010
  Serious: Yes (Other)
  Sender: FDA-Public Use
  Company Number: BR-ABBOTT-07P-020-0363265-00

PATIENT
  Age: 7 Year
  Sex: Male
  Weight: 20 kg

DRUGS (10)
  1. DEPAKENE [Suspect]
     Indication: BRAIN MASS
     Route: 048
     Dates: start: 20020101
  2. TOPIRAMATE [Concomitant]
     Indication: BRAIN MASS
     Route: 048
     Dates: start: 20060801
  3. NITRAZEPAM [Concomitant]
     Indication: BRAIN MASS
     Route: 048
     Dates: start: 20040101
  4. CETIRIZINE HYDROCHLORIDE [Concomitant]
     Indication: HYPERSENSITIVITY
     Route: 048
     Dates: start: 20040101
  5. OMEPRAZOLE [Concomitant]
     Indication: DRUG USE FOR UNKNOWN INDICATION
     Route: 048
  6. DOMPERIDONE [Concomitant]
     Indication: DRUG USE FOR UNKNOWN INDICATION
     Route: 048
  7. DIMETICONE [Concomitant]
     Indication: FLATULENCE
     Route: 048
  8. FOLIC ACID [Concomitant]
     Indication: DRUG USE FOR UNKNOWN INDICATION
     Route: 048
  9. HOMEOPATHY [Concomitant]
     Indication: DRUG USE FOR UNKNOWN INDICATION
     Route: 048
  10. COD LIVER OIL [Concomitant]
     Indication: FLATULENCE
     Route: 048

REACTIONS (1)
  - PLATELET COUNT DECREASED [None]
